FAERS Safety Report 4836378-4 (Version None)
Quarter: 2005Q4

REPORT INFORMATION
  Report Type: 
  Country: None (occurrence: None)
  Receive Date: 20051123
  Receipt Date: 20050916
  Transmission Date: 20060501
  Serious: Yes (Other)
  Sender: FDA-Public Use
  Company Number: PHNU2005DE03184

PATIENT
  Age: 65 Year
  Sex: Female
  Weight: 52 kg

DRUGS (1)
  1. TRILEPTAL [Suspect]
     Indication: EPILEPSY
     Dosage: 900 MG/D
     Dates: start: 20050910, end: 20050925

REACTIONS (5)
  - ABDOMINAL PAIN [None]
  - CHOLECYSTITIS [None]
  - GALLBLADDER OPERATION [None]
  - GALLBLADDER PERFORATION [None]
  - SWELLING FACE [None]
